FAERS Safety Report 4877070-X (Version None)
Quarter: 2006Q1

REPORT INFORMATION
  Report Type: 
  Country: None (occurrence: None)
  Receive Date: 20060110
  Receipt Date: 20050228
  Transmission Date: 20060701
  Serious: Yes (Hospitalization, Disabling)
  Sender: FDA-Public Use
  Company Number: US-MERCK-0503USA00271

PATIENT
  Age: 69 Year
  Sex: Male
  Weight: 60 kg

DRUGS (5)
  1. VIOXX [Suspect]
     Route: 048
  2. ASPIRIN [Concomitant]
     Route: 065
  3. SYNTHROID [Concomitant]
     Route: 048
  4. CARDIZEM [Concomitant]
     Route: 048
  5. BIAXIN [Concomitant]
     Route: 048

REACTIONS (7)
  - BENIGN PROSTATIC HYPERPLASIA [None]
  - CARDIAC FAILURE CONGESTIVE [None]
  - CEREBROVASCULAR ACCIDENT [None]
  - CHRONIC OBSTRUCTIVE PULMONARY DISEASE [None]
  - LACUNAR INFARCTION [None]
  - MELAENA [None]
  - URINARY RETENTION [None]
